FAERS Safety Report 12609341 (Version 1)
Quarter: 2016Q3

REPORT INFORMATION
  Report Type: Report from Study
  Country: US (occurrence: US)
  Receive Date: 20160801
  Receipt Date: 20160801
  Transmission Date: 20161109
  Serious: Yes (Other)
  Sender: FDA-Public Use
  Company Number: US-AMGEN-USASL2016080722

PATIENT
  Age: 70 Year
  Sex: Female
  Weight: 61.22 kg

DRUGS (13)
  1. CALCIUM [Concomitant]
     Active Substance: CALCIUM
     Dosage: UNK
     Route: 065
  2. VITAMIN D [Concomitant]
     Active Substance: CHOLECALCIFEROL
     Route: 065
  3. PROLIA [Suspect]
     Active Substance: DENOSUMAB
     Indication: BONE LOSS
     Dosage: 60 MG, Q6MO
     Route: 058
     Dates: start: 20160104
  4. MACRODANTIN [Concomitant]
     Active Substance: NITROFURANTOIN
     Dosage: 50 MG, BID
     Route: 048
     Dates: start: 20150928
  5. PROLIA [Suspect]
     Active Substance: DENOSUMAB
     Indication: OSTEOPOROSIS
  6. LOVAZA [Concomitant]
     Active Substance: OMEGA-3-ACID ETHYL ESTERS
     Dosage: 1 G, QD (2 P.O. Q. DAY)
     Route: 048
     Dates: start: 20150928
  7. MULTIVITAMIN [Concomitant]
     Active Substance: VITAMINS
     Dosage: UNK UNK, QD
     Route: 048
     Dates: start: 20150928
  8. PROLIA [Suspect]
     Active Substance: DENOSUMAB
     Indication: BREAST CANCER
  9. FEXOFENADINE [Concomitant]
     Active Substance: FEXOFENADINE\FEXOFENADINE HYDROCHLORIDE
     Dosage: 180 MG, AS NECESSARY
     Route: 048
     Dates: start: 20150928
  10. ASPIRIN. [Concomitant]
     Active Substance: ASPIRIN
     Dosage: 81 MG, QD
     Route: 048
     Dates: start: 20150928
  11. AROMASIN [Concomitant]
     Active Substance: EXEMESTANE
     Dosage: 25 MG, QD
     Route: 048
     Dates: start: 200808, end: 20160309
  12. LANSOPRAZOLE. [Concomitant]
     Active Substance: LANSOPRAZOLE
     Dosage: 30 MG, QD
     Route: 048
  13. MAGNESIUM [Concomitant]
     Active Substance: MAGNESIUM
     Dosage: 200 MG, QD (3 P,O, Q. DAY)
     Route: 048
     Dates: start: 20150928

REACTIONS (5)
  - Immune system disorder [Unknown]
  - Spinal pain [Not Recovered/Not Resolved]
  - Constipation [Recovered/Resolved]
  - Arthropathy [Unknown]
  - Arthralgia [Recovered/Resolved]
